FAERS Safety Report 4293259-5 (Version None)
Quarter: 2004Q1

REPORT INFORMATION
  Report Type: 
  Country: None (occurrence: None)
  Receive Date: 20040126
  Receipt Date: 20031104
  Transmission Date: 20041129
  Serious: No
  Sender: FDA-Public Use
  Company Number: USA031049972

PATIENT
  Age: 86 Year
  Sex: Female
  Weight: 52 kg

DRUGS (3)
  1. FORTEO [Suspect]
     Indication: OSTEOPOROSIS
     Dosage: 29 UG/DAY
     Dates: start: 20031001
  2. PRILOSEC [Concomitant]
  3. LEVOXYL [Concomitant]

REACTIONS (4)
  - BUTTOCK PAIN [None]
  - CHILLS [None]
  - FEELING COLD [None]
  - INJECTION SITE HAEMORRHAGE [None]
